FAERS Safety Report 8139851-9 (Version None)
Quarter: 2012Q1

REPORT INFORMATION
  Report Type: 
  Country: None (occurrence: None)
  Receive Date: 20120215
  Receipt Date: 20120208
  Transmission Date: 20120608
  Serious: Yes (Death, Other)
  Sender: FDA-Public Use
  Company Number: GB-CELGENEUS-167-20785-12020982

PATIENT
  Sex: Female

DRUGS (2)
  1. DALTEPARIN SODIUM [Concomitant]
     Dosage: 5000 UNITS/DAY
     Route: 058
  2. THALIDOMIDE [Suspect]
     Indication: MULTIPLE MYELOMA
     Dosage: 50 MILLIGRAM
     Route: 048

REACTIONS (3)
  - PULMONARY FIBROSIS [None]
  - PULMONARY EMBOLISM [None]
  - DEATH [None]
